FAERS Safety Report 6409151-3 (Version None)
Quarter: 2009Q4

REPORT INFORMATION
  Report Type: 
  Country: None (occurrence: None)
  Receive Date: 20091021
  Receipt Date: 20091012
  Transmission Date: 20100525
  Serious: Yes (Hospitalization, Other)
  Sender: FDA-Public Use
  Company Number: PHHY2009MX41364

PATIENT
  Age: 67 Year
  Sex: Male

DRUGS (5)
  1. DIOVAN HCT [Suspect]
     Indication: HYPERTENSION
     Dosage: 1 TABLET  (160/25MG) PER DAY
     Route: 048
     Dates: start: 20060401, end: 20090710
  2. ENALAPRIL MALEATE [Concomitant]
  3. ACETYLSALICYLIC ACID [Concomitant]
  4. BEZAFIBRATE [Concomitant]
  5. TRIACOR [Concomitant]

REACTIONS (9)
  - BLOOD PRESSURE INCREASED [None]
  - BLOOD TRIGLYCERIDES INCREASED [None]
  - BLOOD UREA INCREASED [None]
  - CARDIOMEGALY [None]
  - KIDNEY ENLARGEMENT [None]
  - KIDNEY INFECTION [None]
  - NAUSEA [None]
  - TINNITUS [None]
  - VOMITING [None]
